FAERS Safety Report 17095630 (Version 1)
Quarter: 2019Q4

REPORT INFORMATION
  Report Type: Spontaneous
  Country: US (occurrence: US)
  Receive Date: 20191201
  Receipt Date: 20191201
  Transmission Date: 20200122
  Serious: Yes (Other)
  Sender: FDA-Public Use
  Company Number: US-VERTEX PHARMACEUTICALS-2019-011783

PATIENT
  Age: 37 Year
  Sex: Female

DRUGS (17)
  1. SYMDEKO [Suspect]
     Active Substance: IVACAFTOR\TEZACAFTOR
     Indication: CYSTIC FIBROSIS
     Dosage: 100 MG TEZA/150 MG IVA AM; 150 MG IVA PM
     Route: 048
     Dates: start: 20180403, end: 201911
  2. AZITHROMYCINE [Concomitant]
     Active Substance: AZITHROMYCIN
  3. ONDANSETRON [Concomitant]
     Active Substance: ONDANSETRON
  4. PULMOZYME [Concomitant]
     Active Substance: DORNASE ALFA
  5. TOBI [Concomitant]
     Active Substance: TOBRAMYCIN
  6. LANTUS [Concomitant]
     Active Substance: INSULIN GLARGINE
  7. LEVOFLOXACIN. [Concomitant]
     Active Substance: LEVOFLOXACIN
  8. HYPERSAL [Concomitant]
     Active Substance: SODIUM CHLORIDE
  9. IBUPROFEN. [Concomitant]
     Active Substance: IBUPROFEN
  10. CAYSTON [Concomitant]
     Active Substance: AZTREONAM
  11. PANTOPRAZOLE [Concomitant]
     Active Substance: PANTOPRAZOLE
  12. CYCLOBENZAPRINE. [Concomitant]
     Active Substance: CYCLOBENZAPRINE
  13. GAVILYTE G [Concomitant]
     Active Substance: POLYETHYLENE GLYCOL 3350\POTASSIUM CHLORIDE\SODIUM BICARBONATE\SODIUM CHLORIDE\SODIUM SULFATE ANHYDROUS
  14. LEVAQUIN [Concomitant]
     Active Substance: LEVOFLOXACIN
  15. ZENPEP [Concomitant]
     Active Substance: PANCRELIPASE AMYLASE\PANCRELIPASE LIPASE\PANCRELIPASE PROTEASE
  16. TRAMADOL. [Concomitant]
     Active Substance: TRAMADOL
  17. ULTRASE MT20 [Concomitant]

REACTIONS (1)
  - Ovarian cyst [Unknown]

NARRATIVE: CASE EVENT DATE: 20191120
